FAERS Safety Report 10192205 (Version 1)
Quarter: 2014Q2

REPORT INFORMATION
  Report Type: Spontaneous
  Country: US (occurrence: US)
  Receive Date: 20140523
  Receipt Date: 20140523
  Transmission Date: 20141212
  Serious: Yes (Hospitalization, Other)
  Sender: FDA-Public Use
  Company Number: US-ABBVIE-14P-163-1237756-00

PATIENT
  Age: 58 Year
  Sex: Male

DRUGS (1)
  1. ANDROGEL [Suspect]
     Indication: BLOOD TESTOSTERONE DECREASED

REACTIONS (7)
  - Myocardial infarction [Unknown]
  - Injury [Unknown]
  - Pain [Unknown]
  - Pain [Unknown]
  - Emotional distress [Unknown]
  - Impaired work ability [Unknown]
  - Anxiety [Unknown]
